FAERS Safety Report 9097341 (Version 1)
Quarter: 2013Q1

REPORT INFORMATION
  Report Type: Spontaneous
  Country: JP (occurrence: JP)
  Receive Date: 20130212
  Receipt Date: 20130212
  Transmission Date: 20140127
  Serious: Yes (Death, Other)
  Sender: FDA-Public Use
  Company Number: JP-PFIZER INC-2012206436

PATIENT
  Age: 54 Year
  Sex: Female
  Weight: 44.6 kg

DRUGS (10)
  1. VFEND [Suspect]
     Indication: FUNGAL INFECTION
     Dosage: 120 MG, 2X/DAY
     Route: 041
     Dates: start: 20120803, end: 20120807
  2. SOL-MELCORT [Concomitant]
     Indication: IMMUNOSUPPRESSION
     Dosage: 40 MG, 1X/DAY
     Route: 041
     Dates: start: 20120724, end: 20120803
  3. SOL-MELCORT [Concomitant]
     Dosage: 40 MG, 1X/DAY
     Route: 041
     Dates: start: 20120807, end: 20120914
  4. FRAGMIN [Concomitant]
     Dosage: 800 ML, UNK
     Route: 041
     Dates: start: 20120718, end: 20120914
  5. AMIKACIN [Concomitant]
     Indication: INFECTION
     Dosage: UNK
     Route: 041
     Dates: start: 20120724, end: 20120823
  6. MEROPEN [Concomitant]
     Indication: SEPSIS
     Dosage: UNK
     Route: 041
     Dates: start: 20120802
  7. NEUTROGIN [Concomitant]
     Indication: TRANSPLANT
     Dosage: 250 UG, 1X/DAY
     Route: 041
     Dates: start: 20120730, end: 20120823
  8. PROGRAF [Concomitant]
     Indication: IMMUNOSUPPRESSION
     Dosage: UNK
     Route: 041
     Dates: start: 20120724, end: 20120910
  9. MEYLON [Concomitant]
     Dosage: 40 MG, UNK
     Route: 041
     Dates: start: 20120718, end: 20120914
  10. METHYLPREDNISOLONE SODIUM SUCCINATE [Concomitant]
     Indication: CYTOKINE STORM
     Dosage: 500 MG, 1X/DAY
     Route: 041
     Dates: start: 20120803, end: 20120806

REACTIONS (2)
  - Hallucination, visual [Recovered/Resolved]
  - Burkitt^s lymphoma [Fatal]
